FAERS Safety Report 7164146-X (Version None)
Quarter: 2010Q4

REPORT INFORMATION
  Report Type: 
  Country: None (occurrence: None)
  Receive Date: 20101123
  Receipt Date: 20100804
  Transmission Date: 20110411
  Serious: No
  Sender: FDA-Public Use
  Company Number: 015291

PATIENT
  Sex: Male

DRUGS (2)
  1. CIMZIA [Suspect]
     Dosage: (SUBCUTANEOUS), (200 MG 1X/14 DAYS SUBCUTANEOUS)
     Route: 058
     Dates: start: 20100608
  2. MERCAPTOPURINE [Concomitant]

REACTIONS (2)
  - DRUG INEFFECTIVE [None]
  - VARICELLA [None]
